FAERS Safety Report 9454642 (Version 1)
Quarter: 2013Q3

REPORT INFORMATION
  Report Type: Spontaneous
  Country: US (occurrence: US)
  Receive Date: 20130812
  Receipt Date: 20130812
  Transmission Date: 20140515
  Serious: Yes (Other)
  Sender: FDA-Public Use
  Company Number: US-TEVA-424778USA

PATIENT
  Sex: 0

DRUGS (1)
  1. PRAVASTATIN [Suspect]

REACTIONS (2)
  - Abasia [Unknown]
  - Myalgia [Not Recovered/Not Resolved]
